FAERS Safety Report 9007459 (Version 1)
Quarter: 2013Q1

REPORT INFORMATION
  Report Type: Spontaneous
  Country: US (occurrence: US)
  Receive Date: 20130110
  Receipt Date: 20130110
  Transmission Date: 20140127
  Serious: Yes (Hospitalization)
  Sender: FDA-Public Use
  Company Number: US-MERCK-1301USA003059

PATIENT
  Age: 14 Year
  Sex: Female

DRUGS (3)
  1. MONTELUKAST SODIUM [Suspect]
     Route: 048
  2. BUDESONIDE [Suspect]
  3. CORTICOSTEROIDS (UNSPECIFIED) [Suspect]

REACTIONS (2)
  - Asthma [Unknown]
  - Allergic granulomatous angiitis [Unknown]
